FAERS Safety Report 11856716 (Version 1)
Quarter: 2015Q4

REPORT INFORMATION
  Report Type: Spontaneous
  Country: FR (occurrence: FR)
  Receive Date: 20151221
  Receipt Date: 20151221
  Transmission Date: 20160305
  Serious: Yes (Hospitalization)
  Sender: FDA-Public Use
  Company Number: FR-FRI-1000081743

PATIENT
  Age: 74 Year
  Sex: Female

DRUGS (5)
  1. CALCIDOSE [Suspect]
     Active Substance: CALCIUM CARBONATE
     Indication: PRODUCT USED FOR UNKNOWN INDICATION
     Dosage: 1 DOSAGE FORM STARTED 6 MONTHS PRIOR RO THE REPORT
     Route: 048
  2. BACLOFEN. [Suspect]
     Active Substance: BACLOFEN
     Indication: PRODUCT USED FOR UNKNOWN INDICATION
     Dosage: 30 MG STARTED 6 MONTHS PRIOR TO THE REPORT
     Route: 048
  3. NOCTAMIDE [Suspect]
     Active Substance: LORMETAZEPAM
     Indication: PRODUCT USED FOR UNKNOWN INDICATION
     Dosage: STARTED 6 MONTHS PRIOR TO THE REPORT
     Route: 048
  4. CYMBALTA [Suspect]
     Active Substance: DULOXETINE HYDROCHLORIDE
     Indication: PRODUCT USED FOR UNKNOWN INDICATION
     Dosage: STARTED 6 MONTHS PRIOR TO THE REPORT
     Route: 048
  5. MILNACIPRAN [Suspect]
     Active Substance: MILNACIPRAN
     Indication: PRODUCT USED FOR UNKNOWN INDICATION
     Dosage: STARTED 6 MONTHS PRIOR TO THE REPORT
     Route: 048

REACTIONS (1)
  - Tonic convulsion [Unknown]

NARRATIVE: CASE EVENT DATE: 20151128
